FAERS Safety Report 8277417-0 (Version None)
Quarter: 2012Q2

REPORT INFORMATION
  Report Type: 
  Country: None (occurrence: None)
  Receive Date: 20120412
  Receipt Date: 20120409
  Transmission Date: 20120825
  Serious: Yes (Disabling)
  Sender: FDA-Public Use
  Company Number: US-PFIZER INC-2012088689

PATIENT
  Sex: Female
  Weight: 76.19 kg

DRUGS (3)
  1. CYMBALTA [Concomitant]
     Dosage: UNK
  2. NEXIUM [Concomitant]
     Dosage: UNK
  3. RELPAX [Suspect]
     Indication: MIGRAINE
     Dosage: UNK, AS NEEDED
     Route: 048
     Dates: start: 20080101, end: 20111001

REACTIONS (2)
  - MIGRAINE [None]
  - FIBROMYALGIA [None]
